FAERS Safety Report 5596973-4 (Version None)
Quarter: 2008Q1

REPORT INFORMATION
  Report Type: 
  Country: None (occurrence: None)
  Receive Date: 20080121
  Receipt Date: 20080117
  Transmission Date: 20080703
  Serious: Yes (Hospitalization)
  Sender: FDA-Public Use
  Company Number: FR-SP-2007-03002

PATIENT
  Age: 71 Year
  Sex: Male

DRUGS (5)
  1. IMMUCYST [Suspect]
     Indication: TRANSITIONAL CELL CARCINOMA
     Route: 043
  2. OFLOXACIN [Concomitant]
     Route: 048
  3. RIMIFON [Concomitant]
     Route: 048
  4. DEXAMBUTOL (ETHAMBUTOL) [Concomitant]
     Route: 048
  5. IMOVANE (ZOPICLONE) [Concomitant]
     Route: 048

REACTIONS (3)
  - BOVINE TUBERCULOSIS [None]
  - GLOMERULONEPHRITIS [None]
  - PLEURAL EFFUSION [None]
